APPROVED DRUG PRODUCT: METHYLPREDNISOLONE
Active Ingredient: METHYLPREDNISOLONE
Strength: 4MG
Dosage Form/Route: TABLET;ORAL
Application: A210985 | Product #001
Applicant: NOVAST LABORATORIES LTD
Approved: Jan 9, 2019 | RLD: No | RS: No | Type: DISCN